FAERS Safety Report 10233920 (Version 1)
Quarter: 2014Q2

REPORT INFORMATION
  Report Type: Spontaneous
  Country: US (occurrence: US)
  Receive Date: 20140612
  Receipt Date: 20140612
  Transmission Date: 20141212
  Serious: Yes (Other)
  Sender: FDA-Public Use
  Company Number: US-PFIZER INC-2014157432

PATIENT
  Sex: Female
  Weight: 89.34 kg

DRUGS (3)
  1. GABAPENTIN [Suspect]
     Indication: NEUROPATHY PERIPHERAL
     Dosage: 600 MG, 2X/DAY
     Route: 048
     Dates: start: 2007, end: 2007
  2. GABAPENTIN [Suspect]
     Dosage: 600 MG, 3X/DAY
     Route: 048
     Dates: start: 2007
  3. LYRICA [Suspect]
     Indication: NEUROPATHY PERIPHERAL
     Dosage: UNK
     Dates: end: 2014

REACTIONS (11)
  - Hyperthyroidism [Unknown]
  - Glucose tolerance impaired [Unknown]
  - Anxiety [Unknown]
  - Depression [Unknown]
  - Gastrooesophageal reflux disease [Unknown]
  - Hypertonic bladder [Unknown]
  - Sleep disorder [Unknown]
  - Migraine [Unknown]
  - Cardiac disorder [Unknown]
  - Constipation [Unknown]
  - Pain [Unknown]
